FAERS Safety Report 5423727-1 (Version None)
Quarter: 2007Q3

REPORT INFORMATION
  Report Type: 
  Country: None (occurrence: None)
  Receive Date: 20070727
  Receipt Date: 20040228
  Transmission Date: 20080115
  Serious: Yes (Hospitalization)
  Sender: FDA-Public Use
  Company Number: THYM-10172

PATIENT
  Age: 44 Year
  Sex: Male
  Weight: 71 kg

DRUGS (19)
  1. THYMOGLOBULIN [Suspect]
     Indication: IMMUNOSUPPRESSION
     Dosage: 105 MG QD
     Dates: start: 20031216, end: 20031216
  2. THYMOGLOBULIN [Suspect]
     Indication: IMMUNOSUPPRESSION
     Dosage: 105 MG QD
     Dates: start: 20031218, end: 20031218
  3. THYMOGLOBULIN [Suspect]
     Indication: IMMUNOSUPPRESSION
     Dosage: 105 MG QD
     Dates: start: 20031221, end: 20031221
  4. THYMOGLOBULIN [Suspect]
     Indication: IMMUNOSUPPRESSION
     Dosage: 55 MG QD
     Dates: start: 20031225, end: 20031225
  5. THYMOGLOBULIN [Suspect]
     Indication: IMMUNOSUPPRESSION
     Dosage: 55 MG QD
     Dates: start: 20031229, end: 20031229
  6. BUPIVACAINE [Concomitant]
  7. FAMOTIDINE [Concomitant]
  8. FUROSEMIDE [Concomitant]
  9. METHYLPREDNISOLONE [Concomitant]
  10. MORPHINE [Concomitant]
  11. ACETAMINOPHEN [Concomitant]
  12. ALBUTEROL [Concomitant]
  13. BUMETANIDE [Concomitant]
  14. CALCIUM GLUCONATE [Concomitant]
  15. CLOTRIMAZOLE [Concomitant]
  16. DEXTROSE [Concomitant]
  17. DILTIAZEM [Concomitant]
  18. DIPHENHYDRAMINE HCL [Concomitant]
  19. ERYTHROPOEITIN [Concomitant]

REACTIONS (1)
  - RENAL ARTERY THROMBOSIS [None]
